FAERS Safety Report 24304389 (Version 1)
Quarter: 2024Q3

REPORT INFORMATION
  Report Type: Spontaneous
  Country: US (occurrence: None)
  Receive Date: 20240910
  Receipt Date: 20240910
  Transmission Date: 20241016
  Serious: Yes (Disabling)
  Sender: Public
  Company Number: None

PATIENT
  Age: 74 Year
  Sex: Female
  Weight: 69.75 kg

DRUGS (23)
  1. MAGNESIUM CITRATE [Suspect]
     Active Substance: MAGNESIUM CITRATE
     Indication: Colonoscopy
     Dosage: 30 OUNCES DALY ORAL
     Route: 048
     Dates: start: 20240331, end: 20240331
  2. vaginal estrogen [Concomitant]
  3. ASCORBIC ACID [Concomitant]
     Active Substance: ASCORBIC ACID
  4. VITAMIN D3 [Concomitant]
     Active Substance: CHOLECALCIFEROL
  5. JWH-018 [Concomitant]
     Active Substance: JWH-018
  6. TOCOPHEROL [Concomitant]
     Active Substance: TOCOPHEROL
  7. VITAMINS [Concomitant]
     Active Substance: VITAMINS
  8. FISH OIL [Concomitant]
     Active Substance: FISH OIL
  9. BORAGE OIL [Concomitant]
     Active Substance: BORAGE OIL
  10. CALCIUM [Concomitant]
     Active Substance: CALCIUM
  11. DIETARY SUPPLEMENT [Concomitant]
     Active Substance: DIETARY SUPPLEMENT
  12. DIMETHYL SULFONE [Concomitant]
     Active Substance: DIMETHYL SULFONE
  13. GINKGO [Concomitant]
     Active Substance: GINKGO
  14. PROBIOTICS NOS [Concomitant]
     Active Substance: PROBIOTICS NOS
  15. UBIQUINOL [Concomitant]
     Active Substance: UBIQUINOL
  16. carotenoid complex [Concomitant]
  17. CRATAEGUS LAEVIGATA FRUIT [Concomitant]
     Active Substance: CRATAEGUS LAEVIGATA FRUIT
  18. LUTEIN [Concomitant]
     Active Substance: LUTEIN
  19. ZEAXANTHIN [Concomitant]
     Active Substance: ZEAXANTHIN
  20. ASTAXANTHIN [Concomitant]
     Active Substance: ASTAXANTHIN
  21. BILBERRY [Concomitant]
     Active Substance: BILBERRY
  22. CHROMIUM NICOTINATE [Concomitant]
  23. PLANT STEROLS [Concomitant]

REACTIONS (6)
  - Nausea [None]
  - Gastrointestinal disorder [None]
  - Urinary tract infection [None]
  - Ovarian cyst [None]
  - Endometrial thickening [None]
  - Abdominal pain [None]

NARRATIVE: CASE EVENT DATE: 20240331
